FAERS Safety Report 4864192-2 (Version None)
Quarter: 2005Q4

REPORT INFORMATION
  Report Type: 
  Country: None (occurrence: None)
  Receive Date: 20051222
  Receipt Date: 20051208
  Transmission Date: 20060501
  Serious: Yes (Life-Threatening)
  Sender: FDA-Public Use
  Company Number: US-AMGEN-US160688

PATIENT
  Age: 19 Year
  Sex: Female

DRUGS (4)
  1. KINERET [Suspect]
     Indication: DRUG USE FOR UNKNOWN INDICATION
     Dates: start: 20050301, end: 20051201
  2. CALCIUM GLUCONATE [Concomitant]
  3. VITAMIN D [Concomitant]
  4. DOXEPIN HCL [Concomitant]

REACTIONS (4)
  - HEPATIC FIBROSIS [None]
  - HEPATIC NECROSIS [None]
  - RASH [None]
  - VIRAL INFECTION [None]
